FAERS Safety Report 25020042 (Version 2)
Quarter: 2025Q1

REPORT INFORMATION
  Report Type: Report from Study
  Country: JP (occurrence: JP)
  Receive Date: 20250227
  Receipt Date: 20250321
  Transmission Date: 20250408
  Serious: No
  Sender: EISAI
  Company Number: JP-Eisai-EC-2025-184609

PATIENT

DRUGS (1)
  1. LEQEMBI [Suspect]
     Active Substance: LECANEMAB-IRMB
     Indication: Product used for unknown indication
     Route: 041

REACTIONS (1)
  - Superficial siderosis of central nervous system [Unknown]

NARRATIVE: CASE EVENT DATE: 20250201
